FAERS Safety Report 5699690-5 (Version None)
Quarter: 2008Q2

REPORT INFORMATION
  Report Type: 
  Country: None (occurrence: None)
  Receive Date: 20080410
  Receipt Date: 20080401
  Transmission Date: 20081010
  Serious: Yes (Other)
  Sender: FDA-Public Use
  Company Number: PHEH2008US03403

PATIENT
  Age: 90 Year
  Sex: Female

DRUGS (4)
  1. LIPITOR [Concomitant]
     Dosage: 5 MG, UNK
  2. ASPIRIN [Concomitant]
     Dosage: 325 UNK, UNK
  3. TEKTURNA [Suspect]
     Indication: HYPERTENSION
     Dosage: 150 UNK, QD
     Route: 048
     Dates: start: 20080212, end: 20080325
  4. METOPROLOL TARTRATE [Concomitant]
     Dosage: 25 MG, UNK

REACTIONS (1)
  - HALLUCINATION [None]
